FAERS Safety Report 6309572-3 (Version None)
Quarter: 2009Q3

REPORT INFORMATION
  Report Type: 
  Country: None (occurrence: None)
  Receive Date: 20090814
  Receipt Date: 20090804
  Transmission Date: 20100115
  Serious: Yes (Other)
  Sender: FDA-Public Use
  Company Number: PHEH2009US07057

PATIENT
  Sex: Female
  Weight: 84.807 kg

DRUGS (17)
  1. EXJADE [Suspect]
     Indication: MULTIPLE MYELOMA
     Dosage: 1500 MG DAILY
     Route: 048
     Dates: start: 20090617
  2. EXJADE [Suspect]
     Indication: ANAEMIA
  3. EXJADE [Suspect]
     Indication: IRON OVERLOAD
  4. NYSTATIN [Concomitant]
  5. METOPROLOL [Concomitant]
     Dosage: 125 MG, BID
  6. PLAVIX [Concomitant]
     Dosage: 75 MG, QD
  7. LASIX [Concomitant]
     Dosage: PRN
  8. POTASSIUM CHLORIDE [Concomitant]
     Dosage: BID
  9. IRON [Concomitant]
     Dosage: 160 MG
  10. ASPIRIN [Concomitant]
  11. LEVOTHYROXINE [Concomitant]
     Dosage: 25 MG DAILY
  12. VITAMIN B-12 [Concomitant]
  13. CENTRUM SILVER [Concomitant]
  14. CALTRATE [Concomitant]
  15. TYLENOL (CAPLET) [Suspect]
  16. KLOR-CON [Concomitant]
  17. COMPAZINE [Concomitant]
     Dosage: 10 MG Q 6H PRN

REACTIONS (11)
  - ARTHRITIS [None]
  - BACK PAIN [None]
  - BLOOD ALBUMIN DECREASED [None]
  - BLOOD UREA INCREASED [None]
  - DIARRHOEA [None]
  - FATIGUE [None]
  - MUSCULOSKELETAL PAIN [None]
  - NAUSEA [None]
  - SKIN EXFOLIATION [None]
  - STOMATITIS [None]
  - WOUND DRAINAGE [None]
